FAERS Safety Report 17538946 (Version 1)
Quarter: 2020Q1

REPORT INFORMATION
  Report Type: Spontaneous
  Country: US (occurrence: US)
  Receive Date: 20200305
  Receipt Date: 20200305
  Transmission Date: 20200409
  Serious: Yes (Hospitalization)
  Sender: FDA-Public Use
  Company Number: None

PATIENT
  Age: 73 Year
  Sex: Male
  Weight: 86 kg

DRUGS (1)
  1. TOPOTECAN [Suspect]
     Active Substance: TOPOTECAN HYDROCHLORIDE
     Dates: end: 20200212

REACTIONS (5)
  - Fatigue [None]
  - Thrombocytopenia [None]
  - Dyspnoea exertional [None]
  - Atrioventricular block second degree [None]
  - Therapy change [None]

NARRATIVE: CASE EVENT DATE: 20200212
